FAERS Safety Report 12127723 (Version 2)
Quarter: 2016Q3

REPORT INFORMATION
  Report Type: Spontaneous
  Country: US (occurrence: US)
  Receive Date: 20160229
  Receipt Date: 20160715
  Transmission Date: 20161109
  Serious: Yes (Other)
  Sender: FDA-Public Use
  Company Number: US-BAYER-2016-033945

PATIENT
  Age: 31 Year
  Sex: Female
  Weight: 70.3 kg

DRUGS (1)
  1. MIRENA [Suspect]
     Active Substance: LEVONORGESTREL
     Indication: CONTRACEPTION
     Dosage: 20 MCG/24HR, CONT
     Route: 015
     Dates: start: 20140820, end: 20151127

REACTIONS (14)
  - Uterine perforation [Recovering/Resolving]
  - Complication of device removal [None]
  - Seroma [None]
  - Pain [None]
  - Abdominal pain [Recovering/Resolving]
  - Menstruation irregular [None]
  - Device dislocation [None]
  - Genital haemorrhage [Recovering/Resolving]
  - Procedural pain [Recovered/Resolved]
  - Polymenorrhoea [Recovering/Resolving]
  - Gallbladder disorder [Recovering/Resolving]
  - Cyst [Recovering/Resolving]
  - Suprapubic pain [None]
  - Abdominal pain upper [None]

NARRATIVE: CASE EVENT DATE: 2014
